FAERS Safety Report 24632014 (Version 1)
Quarter: 2024Q4

REPORT INFORMATION
  Report Type: Spontaneous
  Country: US (occurrence: US)
  Receive Date: 20241118
  Receipt Date: 20241118
  Transmission Date: 20250115
  Serious: Yes (Other)
  Sender: BAYER HEALTHCARE PHARMACEUTICALS INC.
  Company Number: US-BAYER-2024A163595

PATIENT
  Age: 57 Year
  Sex: Male

DRUGS (14)
  1. LAROTRECTINIB [Suspect]
     Active Substance: LAROTRECTINIB
     Indication: NTRK gene fusion cancer
     Dosage: UNK
     Dates: start: 2019
  2. LAROTRECTINIB [Suspect]
     Active Substance: LAROTRECTINIB
     Indication: Pancreatic neuroendocrine tumour
     Dosage: UNK
     Dates: start: 2021
  3. LAROTRECTINIB [Suspect]
     Active Substance: LAROTRECTINIB
     Indication: NTRK gene fusion cancer
     Dosage: UNK
     Dates: start: 2022
  4. SELITRECTINIB [Suspect]
     Active Substance: SELITRECTINIB
     Dosage: UNK
     Dates: start: 2020
  5. GEMCITABINE HYDROCHLORIDE\OXALIPLATIN [Suspect]
     Active Substance: GEMCITABINE HYDROCHLORIDE\OXALIPLATIN
     Dosage: UNK
     Dates: start: 2021
  6. FLUOROURACIL [Suspect]
     Active Substance: FLUOROURACIL
     Dosage: UNK
     Dates: start: 2021
  7. LEUCOVORIN [Suspect]
     Active Substance: LEUCOVORIN\LEUCOVORIN CALCIUM
     Dosage: UNK
  8. CARBOPLATIN [Suspect]
     Active Substance: CARBOPLATIN
     Dosage: UNK
     Dates: start: 2021
  9. IPILIMUMAB [Suspect]
     Active Substance: IPILIMUMAB
     Dosage: UNK
     Dates: start: 2022
  10. OXALIPLATIN [Suspect]
     Active Substance: OXALIPLATIN
     Dosage: UNK
     Dates: start: 2021
  11. REPOTRECTINIB [Concomitant]
     Active Substance: REPOTRECTINIB
     Dosage: 160 MG, QD
     Dates: start: 2022
  12. REPOTRECTINIB [Concomitant]
     Active Substance: REPOTRECTINIB
     Dosage: 160 MG, BID
  13. ETOPOSIDE [Suspect]
     Active Substance: ETOPOSIDE
  14. NIVOLUMAB [Suspect]
     Active Substance: NIVOLUMAB

REACTIONS (7)
  - Neuropathy peripheral [None]
  - Temperature intolerance [None]
  - Pulmonary embolism [None]
  - Fatigue [None]
  - Rash [None]
  - Nausea [None]
  - Drug resistance [None]
